FAERS Safety Report 10083155 (Version 1)
Quarter: 2014Q2

REPORT INFORMATION
  Report Type: Spontaneous
  Country: US (occurrence: US)
  Receive Date: 20140417
  Receipt Date: 20140417
  Transmission Date: 20141212
  Serious: No
  Sender: FDA-Public Use
  Company Number: US-BIOGENIDEC-2014BI035831

PATIENT
  Sex: Female

DRUGS (1)
  1. AVONEX [Suspect]
     Indication: MULTIPLE SCLEROSIS
     Route: 030

REACTIONS (5)
  - Migraine [Recovered/Resolved]
  - Retching [Recovered/Resolved]
  - Visual impairment [Unknown]
  - Pain of skin [Recovered/Resolved]
  - Nausea [Recovered/Resolved]
